FAERS Safety Report 5100117-2 (Version None)
Quarter: 2006Q3

REPORT INFORMATION
  Report Type: 
  Country: None (occurrence: None)
  Receive Date: 20060802
  Receipt Date: 20060530
  Transmission Date: 20061208
  Serious: Yes (Other)
  Sender: FDA-Public Use
  Company Number: US-JNJFOC-20060506380

PATIENT
  Age: 22 Month
  Sex: Male

DRUGS (4)
  1. ACETAMINOPHEN [Suspect]
     Indication: ADENOIDECTOMY
     Dosage: 4000 MG TO 5000 MG CHEWED
     Dates: start: 20060527, end: 20060527
  2. ACETAMINOPHEN [Suspect]
     Indication: DRUG USE FOR UNKNOWN INDICATION
     Dosage: 4000 MG TO 5000 MG CHEWED
     Dates: start: 20060527, end: 20060527
  3. ACETAMINOPHEN [Suspect]
     Indication: TONSILLECTOMY
     Dosage: 4000 MG TO 5000 MG CHEWED
     Dates: start: 20060527, end: 20060527
  4. TYLENOL W/ CODEINE [Concomitant]

REACTIONS (2)
  - ACCIDENTAL DRUG INTAKE BY CHILD [None]
  - ACCIDENTAL OVERDOSE [None]
